FAERS Safety Report 5742192-8 (Version None)
Quarter: 2008Q2

REPORT INFORMATION
  Report Type: 
  Country: None (occurrence: None)
  Receive Date: 20080514
  Receipt Date: 20080514
  Transmission Date: 20081010
  Serious: Yes (Life-Threatening, Hospitalization)
  Sender: FDA-Public Use
  Company Number: None

PATIENT
  Age: 73 Year
  Sex: Female
  Weight: 77.1115 kg

DRUGS (2)
  1. DIGITEK TABS 0.25 MG AMIDE -BERTEK- [Suspect]
     Indication: ARRHYTHMIA
     Dosage: 0.25 MG 1 TABLET DAILY PO
     Route: 048
     Dates: start: 20070828, end: 20070923
  2. DIGITEK TABS 0.25 MG AMIDE -BERTEK- [Suspect]
     Indication: PALPITATIONS
     Dosage: 0.25 MG 1 TABLET DAILY PO
     Route: 048
     Dates: start: 20070828, end: 20070923

REACTIONS (2)
  - PHARMACEUTICAL PRODUCT COMPLAINT [None]
  - THERAPEUTIC AGENT TOXICITY [None]
